FAERS Safety Report 12042285 (Version 1)
Quarter: 2016Q1

REPORT INFORMATION
  Report Type: Spontaneous
  Country: US (occurrence: US)
  Receive Date: 20160208
  Receipt Date: 20160208
  Transmission Date: 20160526
  Serious: No
  Sender: FDA-Public Use
  Company Number: US-APOTEX-2015AP014486

PATIENT
  Sex: Female
  Weight: 3.18 kg

DRUGS (2)
  1. PAXIL [Suspect]
     Active Substance: PAROXETINE HYDROCHLORIDE
     Dosage: 20 MG, HALF TABLET A DAY
  2. PAXIL [Suspect]
     Active Substance: PAROXETINE HYDROCHLORIDE
     Indication: GENERALISED ANXIETY DISORDER
     Dosage: 40 MG, UNK
     Route: 064

REACTIONS (2)
  - Exposure during pregnancy [Unknown]
  - Depression [Unknown]

NARRATIVE: CASE EVENT DATE: 20060525
